FAERS Safety Report 7551522-6 (Version None)
Quarter: 2011Q2

REPORT INFORMATION
  Report Type: 
  Country: None (occurrence: None)
  Receive Date: 20110616
  Receipt Date: 20110608
  Transmission Date: 20111010
  Serious: Yes (Other)
  Sender: FDA-Public Use
  Company Number: DE-JNJFOC-20110604221

PATIENT
  Sex: Male

DRUGS (2)
  1. NICORETTE [Suspect]
     Dosage: FOUR TO FIVE INHALERS PER DAY
     Route: 055
     Dates: start: 20110501
  2. NICORETTE [Suspect]
     Indication: SMOKING CESSATION THERAPY
     Route: 055
     Dates: start: 20110501

REACTIONS (4)
  - WITHDRAWAL SYNDROME [None]
  - AGGRESSION [None]
  - SUICIDAL IDEATION [None]
  - UNDERDOSE [None]
